FAERS Safety Report 5721284-3 (Version None)
Quarter: 2008Q2

REPORT INFORMATION
  Report Type: 
  Country: None (occurrence: None)
  Receive Date: 20080429
  Receipt Date: 20080418
  Transmission Date: 20081010
  Serious: Yes (Other)
  Sender: FDA-Public Use
  Company Number: US-BAYER-200811562BCC

PATIENT
  Age: 45 Year
  Sex: Male
  Weight: 137 kg

DRUGS (15)
  1. ASPIRIN [Suspect]
     Indication: ANTICOAGULANT THERAPY
     Dosage: UNIT DOSE: 325 MG
     Route: 048
     Dates: start: 19740101, end: 20020819
  2. ASPIRIN [Suspect]
     Indication: ISCHAEMIC HEART DISEASE PROPHYLAXIS
     Dosage: UNIT DOSE: 81 MG
     Route: 048
     Dates: start: 20020820
  3. LISINOPRIL [Concomitant]
  4. METOPROLOL TARTRATE [Concomitant]
  5. ISOSORBIDE MONONITRATE [Concomitant]
  6. BUMETANIDE [Concomitant]
  7. SOTALOL HCL [Concomitant]
  8. POTASSIUM CHLORIDE [Concomitant]
  9. WARFARIN SODIUM [Concomitant]
  10. NITROGLYCERIN [Concomitant]
  11. LIPITOR [Concomitant]
  12. NIACIN [Concomitant]
  13. BYETTA (EXENATIDE) INJECTION [Concomitant]
  14. PAXIL [Concomitant]
  15. XANAX [Concomitant]

REACTIONS (4)
  - CARDIAC ARREST [None]
  - CHEST PAIN [None]
  - CORONARY ARTERY REOCCLUSION [None]
  - MYOCARDIAL INFARCTION [None]
